FAERS Safety Report 4532268-5 (Version None)
Quarter: 2004Q4

REPORT INFORMATION
  Report Type: 
  Country: None (occurrence: None)
  Receive Date: 20041217
  Receipt Date: 20041202
  Transmission Date: 20050328
  Serious: Yes (Disabling)
  Sender: FDA-Public Use
  Company Number: 200413453BCC

PATIENT
  Age: 83 Year
  Sex: Female
  Weight: 58.9676 kg

DRUGS (9)
  1. ALEVE [Suspect]
     Indication: BACK PAIN
     Dosage: PRN, ORAL
     Route: 048
  2. HIGH BLOOD PRESSURE PILLS (NOS) [Concomitant]
  3. XANAX [Concomitant]
  4. ZOCOR [Concomitant]
  5. FUROSEMIDE [Concomitant]
  6. SINGULAIR [Concomitant]
  7. DIOVAN [Concomitant]
  8. LEVOXYL [Concomitant]
  9. KCL TAB [Concomitant]

REACTIONS (11)
  - ARTHROPOD BITE [None]
  - ASTHENIA [None]
  - BLOOD CREATININE INCREASED [None]
  - BLOOD UREA INCREASED [None]
  - DIFFICULTY IN WALKING [None]
  - FATIGUE [None]
  - MEDICATION ERROR [None]
  - NERVOUSNESS [None]
  - OEDEMA PERIPHERAL [None]
  - RENAL IMPAIRMENT [None]
  - THERAPY NON-RESPONDER [None]
